FAERS Safety Report 5128485-6 (Version None)
Quarter: 2006Q3

REPORT INFORMATION
  Report Type: 
  Country: None (occurrence: None)
  Receive Date: 20060927
  Receipt Date: 20060920
  Transmission Date: 20061208
  Serious: Yes (Hospitalization)
  Sender: FDA-Public Use
  Company Number: 200610684

PATIENT
  Age: 44 Year
  Sex: Female
  Weight: 102 kg

DRUGS (1)
  1. VIVAGLOBIN [Suspect]
     Indication: IMMUNODEFICIENCY
     Dosage: 3 ML DAILY SC
     Route: 058
     Dates: start: 20060905, end: 20060905

REACTIONS (5)
  - ANGER [None]
  - CONTRAINDICATION TO MEDICAL TREATMENT [None]
  - HYPERSENSITIVITY [None]
  - INJECTION SITE RASH [None]
  - RESPIRATORY FAILURE [None]
